FAERS Safety Report 5781783-5 (Version None)
Quarter: 2008Q2

REPORT INFORMATION
  Report Type: 
  Country: None (occurrence: None)
  Receive Date: 20080623
  Receipt Date: 20071031
  Transmission Date: 20081010
  Serious: No
  Sender: FDA-Public Use
  Company Number: US-ASTRAZENECA-2007UW25298

PATIENT
  Sex: Female

DRUGS (1)
  1. RHINOCORT [Suspect]
     Indication: SINUS CONGESTION
     Dosage: ONE SPRAY PER NOSTRIL
     Route: 045

REACTIONS (2)
  - PAIN [None]
  - PAIN IN EXTREMITY [None]
